FAERS Safety Report 16655024 (Version 2)
Quarter: 2021Q4

REPORT INFORMATION
  Report Type: Spontaneous
  Country: CA (occurrence: CA)
  Receive Date: 20190801
  Receipt Date: 20211109
  Transmission Date: 20220303
  Serious: Yes (Other)
  Sender: FDA-Public Use
  Company Number: CA-AUROBINDO-AUR-APL-2019-043670

PATIENT
  Age: 22 Year
  Sex: Female
  Weight: 80 kg

DRUGS (1)
  1. LEVETIRACETAM [Suspect]
     Active Substance: LEVETIRACETAM
     Indication: Seizure
     Dosage: 1500 MILLIGRAM, TWO TIMES A DAY
     Route: 048

REACTIONS (2)
  - Seizure [Unknown]
  - Drug ineffective [Unknown]
